FAERS Safety Report 8827276 (Version 4)
Quarter: 2013Q2

REPORT INFORMATION
  Report Type: Spontaneous
  Country: US (occurrence: US)
  Receive Date: 20121008
  Receipt Date: 20130403
  Transmission Date: 20140414
  Serious: No
  Sender: FDA-Public Use
  Company Number: US-009507513-1209USA010585

PATIENT
  Age: 19 Year
  Sex: Female
  Weight: 73.92 kg

DRUGS (3)
  1. IMPLANON [Suspect]
     Indication: CONTRACEPTION
     Dosage: UNK
     Dates: start: 20110927, end: 20111206
  2. ALBUTEROL [Concomitant]
  3. LAMICTAL [Concomitant]

REACTIONS (4)
  - Device breakage [Unknown]
  - Metrorrhagia [Recovering/Resolving]
  - Metrorrhagia [Recovering/Resolving]
  - Medical device complication [Recovered/Resolved]
